FAERS Safety Report 8901537 (Version 2)
Quarter: 2013Q1

REPORT INFORMATION
  Report Type: Spontaneous
  Country: IT (occurrence: IT)
  Receive Date: 20121109
  Receipt Date: 20130205
  Transmission Date: 20140127
  Serious: Yes (Other)
  Sender: FDA-Public Use
  Company Number: IT-BAYER-2012-105189

PATIENT
  Age: 52 Year
  Sex: Male

DRUGS (4)
  1. NEXAVAR [Suspect]
     Indication: HEPATIC NEOPLASM
     Dosage: DAILY DOSE 400 MG
     Route: 048
     Dates: start: 20120321, end: 20120329
  2. TELZIR [Concomitant]
     Indication: HIV INFECTION
     Dosage: DAILY DOSE 1400 MG
     Route: 048
  3. TRUVADA [Concomitant]
     Indication: HIV INFECTION
     Dosage: UNK
  4. URSODEOXYCHOLIC ACID [Concomitant]

REACTIONS (1)
  - Jaundice cholestatic [Not Recovered/Not Resolved]
